FAERS Safety Report 6571902-5 (Version None)
Quarter: 2010Q1

REPORT INFORMATION
  Report Type: 
  Country: None (occurrence: None)
  Receive Date: 20100205
  Receipt Date: 20100201
  Transmission Date: 20100710
  Serious: Yes (Life-Threatening, Hospitalization, Other)
  Sender: FDA-Public Use
  Company Number: US-BAYER-200939923NA

PATIENT
  Age: 62 Year
  Sex: Male

DRUGS (3)
  1. LEUKINE [Suspect]
     Indication: NEUTROPENIA
     Route: 058
     Dates: start: 20091116, end: 20091116
  2. METFORMIN HCL [Concomitant]
     Indication: DIABETES MELLITUS
     Dosage: TOTAL DAILY DOSE: 1000 MG
  3. INSULIN [Concomitant]
     Indication: DIABETES MELLITUS
     Dosage: 70/30

REACTIONS (2)
  - ACUTE MYOCARDIAL INFARCTION [None]
  - HYPOTENSION [None]
